FAERS Safety Report 8683267 (Version 3)
Quarter: 2013Q4

REPORT INFORMATION
  Report Type: Spontaneous
  Country: US (occurrence: US)
  Receive Date: 20120726
  Receipt Date: 20131101
  Transmission Date: 20140711
  Serious: No
  Sender: FDA-Public Use
  Company Number: US-009507513-1207USA008376

PATIENT
  Sex: Female

DRUGS (3)
  1. COZAAR [Suspect]
     Indication: HYPERTENSION
     Dosage: 100 MG, QD
     Route: 048
  2. COZAAR [Suspect]
     Dosage: 50 MG, QD
     Route: 048
  3. COZAAR [Suspect]
     Dosage: 100 MG, UNK
     Route: 048

REACTIONS (2)
  - Hypotension [Recovered/Resolved]
  - Blood pressure increased [Unknown]
